FAERS Safety Report 4582357-4 (Version None)
Quarter: 2005Q1

REPORT INFORMATION
  Report Type: 
  Country: None (occurrence: None)
  Receive Date: 20050119
  Receipt Date: 20031118
  Transmission Date: 20050727
  Serious: Yes (Other)
  Sender: FDA-Public Use
  Company Number: US-JNJFOC-20030906223

PATIENT
  Age: 43 Year
  Sex: Male
  Weight: 73.4827 kg

DRUGS (2)
  1. DOXIL [Suspect]
     Indication: KAPOSI'S SARCOMA
     Dosage: EVERY 3 WEEKS X 6 MONTHS
  2. TRIZIVIR [Concomitant]

REACTIONS (1)
  - PANCYTOPENIA [None]
